FAERS Safety Report 23864878 (Version 4)
Quarter: 2024Q2

REPORT INFORMATION
  Report Type: Report from Study
  Country: CA (occurrence: CA)
  Receive Date: 20240516
  Receipt Date: 20240624
  Transmission Date: 20240716
  Serious: Yes (Other)
  Sender: FDA-Public Use
  Company Number: CA-JNJFOC-20230957059

PATIENT
  Age: 80 Year
  Sex: Female
  Weight: 56 kg

DRUGS (5)
  1. STELARA [Suspect]
     Active Substance: USTEKINUMAB
     Indication: Colitis ulcerative
     Route: 040
     Dates: start: 20230920
  2. STELARA [Suspect]
     Active Substance: USTEKINUMAB
     Route: 058
     Dates: start: 20231115
  3. STELARA [Suspect]
     Active Substance: USTEKINUMAB
     Route: 058
     Dates: start: 20240306
  4. STELARA [Suspect]
     Active Substance: USTEKINUMAB
     Route: 058
  5. COVID-19 VACCINE [Concomitant]

REACTIONS (6)
  - Colitis ulcerative [Not Recovered/Not Resolved]
  - Device issue [Unknown]
  - Device defective [Unknown]
  - Accidental exposure to product [Unknown]
  - Inappropriate schedule of product administration [Unknown]
  - Off label use [Unknown]

NARRATIVE: CASE EVENT DATE: 20230921
